FAERS Safety Report 24324284 (Version 1)
Quarter: 2024Q3

REPORT INFORMATION
  Report Type: Spontaneous
  Country: JP (occurrence: JP)
  Receive Date: 20240916
  Receipt Date: 20240916
  Transmission Date: 20241016
  Serious: Yes (Hospitalization)
  Sender: NOVITIUM PHARMA
  Company Number: JP-NOVITIUMPHARMA-2024JPNVP01846

PATIENT
  Age: 23 Year
  Sex: Female

DRUGS (7)
  1. PAROXETINE [Suspect]
     Active Substance: PAROXETINE
     Indication: Obsessive-compulsive disorder
  2. DIAZEPAM [Concomitant]
     Active Substance: DIAZEPAM
     Indication: Obsessive-compulsive disorder
  3. MAGNESIUM OXIDE [Concomitant]
     Active Substance: MAGNESIUM OXIDE
     Indication: Obsessive-compulsive disorder
  4. DROSPIRENONE [Concomitant]
     Active Substance: DROSPIRENONE
     Indication: Obsessive-compulsive disorder
  5. ETHINYL ESTRADIOL [Concomitant]
     Active Substance: ETHINYL ESTRADIOL
     Indication: Obsessive-compulsive disorder
     Route: 048
  6. CAFFEINE [Concomitant]
     Active Substance: CAFFEINE
     Indication: Product used for unknown indication
     Dosage: OVERDOSE
  7. THEOPHYLLINE [Concomitant]
     Active Substance: THEOPHYLLINE
     Indication: Product used for unknown indication

REACTIONS (1)
  - Drug interaction [Unknown]
